FAERS Safety Report 12741717 (Version 1)
Quarter: 2016Q3

REPORT INFORMATION
  Report Type: Spontaneous
  Country: US (occurrence: US)
  Receive Date: 20160913
  Receipt Date: 20160913
  Transmission Date: 20161109
  Serious: Yes (Other)
  Sender: FDA-Public Use
  Company Number: None

PATIENT
  Age: 65 Year
  Sex: Female
  Weight: 47.25 kg

DRUGS (7)
  1. CHANTIX [Suspect]
     Active Substance: VARENICLINE TARTRATE
     Indication: SMOKING CESSATION THERAPY
     Route: 048
     Dates: start: 20160601, end: 20160831
  2. ESTRACE [Concomitant]
     Active Substance: ESTRADIOL
  3. SINGULAIR [Concomitant]
     Active Substance: MONTELUKAST SODIUM
  4. CALCIUM [Concomitant]
     Active Substance: CALCIUM
  5. ZYRTEC [Concomitant]
     Active Substance: CETIRIZINE HYDROCHLORIDE
  6. VITAMIN [Concomitant]
     Active Substance: VITAMINS
  7. ACTIVELLA [Concomitant]
     Active Substance: ESTRADIOL\NORETHINDRONE ACETATE

REACTIONS (2)
  - Madarosis [None]
  - Alopecia [None]
